FAERS Safety Report 9624016 (Version 2)
Quarter: 2014Q1

REPORT INFORMATION
  Report Type: Spontaneous
  Country: US (occurrence: US)
  Receive Date: 20131015
  Receipt Date: 20140110
  Transmission Date: 20141002
  Serious: No
  Sender: FDA-Public Use
  Company Number: US-BAUSCH-BL-2013-004965

PATIENT
  Age: 76 Year
  Sex: Female

DRUGS (2)
  1. LATANOPROST OPHTHALMIC SOLUTION 0.005% [Suspect]
     Indication: GLAUCOMA
     Dosage: 1 DROP; AT BEDTIME; RIGHT EYE
     Route: 047
     Dates: end: 20130808
  2. LATANOPROST OPHTHALMIC SOLUTION 0.005% [Suspect]
     Dosage: 1 DROP; AT BEDTIME; LEFT EYE
     Route: 047
     Dates: end: 20130808

REACTIONS (1)
  - Intraocular pressure increased [Recovered/Resolved]
